FAERS Safety Report 5672294-6 (Version None)
Quarter: 2008Q1

REPORT INFORMATION
  Report Type: 
  Country: None (occurrence: None)
  Receive Date: 20080319
  Receipt Date: 20080312
  Transmission Date: 20080703
  Serious: Yes (Hospitalization, Other)
  Sender: FDA-Public Use
  Company Number: PHEH2008US01512

PATIENT
  Age: 43 Year
  Sex: Female
  Weight: 74.829 kg

DRUGS (4)
  1. GLEEVEC [Suspect]
     Indication: CHRONIC MYELOID LEUKAEMIA
     Dosage: 400 MG, QD
     Route: 048
     Dates: start: 20020101, end: 20070807
  2. GLEEVEC [Suspect]
     Dosage: 600MG DAILY
     Route: 048
     Dates: start: 20070807, end: 20071004
  3. GLEEVEC [Suspect]
     Dosage: 800MG DAILY
     Route: 048
     Dates: start: 20071004, end: 20071218
  4. GLEEVEC [Suspect]
     Dosage: 400MG DAILY
     Route: 048
     Dates: start: 20071218, end: 20080124

REACTIONS (16)
  - ABDOMINAL DISTENSION [None]
  - ABDOMINAL PAIN [None]
  - BLADDER CATHETERISATION [None]
  - BREECH PRESENTATION [None]
  - CAESAREAN SECTION [None]
  - DISEASE PROGRESSION [None]
  - DRUG EXPOSURE DURING PREGNANCY [None]
  - FEMALE STERILISATION [None]
  - HAEMATOMA [None]
  - HYPOKALAEMIA [None]
  - LABOUR COMPLICATION [None]
  - PREMATURE LABOUR [None]
  - RED BLOOD CELLS URINE POSITIVE [None]
  - UNINTENDED PREGNANCY [None]
  - WHITE BLOOD CELL COUNT INCREASED [None]
  - WOUND TREATMENT [None]
